FAERS Safety Report 6668164-7 (Version None)
Quarter: 2010Q2

REPORT INFORMATION
  Report Type: 
  Country: None (occurrence: None)
  Receive Date: 20100406
  Receipt Date: 20100323
  Transmission Date: 20101027
  Serious: Yes (Other)
  Sender: FDA-Public Use
  Company Number: LT-RANBAXY-2010RR-32817

PATIENT
  Age: 5 Year
  Sex: Female

DRUGS (2)
  1. KLABAX [Suspect]
     Indication: SINUSITIS
  2. SIMPREX [Concomitant]
     Indication: SINUSITIS

REACTIONS (4)
  - LIP SWELLING [None]
  - RASH [None]
  - SWELLING FACE [None]
  - SWOLLEN TONGUE [None]
